FAERS Safety Report 5272075-1 (Version None)
Quarter: 2007Q1

REPORT INFORMATION
  Report Type: 
  Country: None (occurrence: None)
  Receive Date: 20070322
  Receipt Date: 20070312
  Transmission Date: 20070707
  Serious: Yes (Hospitalization)
  Sender: FDA-Public Use
  Company Number: AUWYE964512MAR07

PATIENT
  Age: 30 Year
  Sex: Male
  Weight: 130 kg

DRUGS (3)
  1. VENLAFAXINE HYDROCHLORIDE [Suspect]
     Dosage: 75 MG DAILY
     Route: 048
  2. TRAMADOL HCL [Interacting]
     Route: 048
     Dates: end: 20060504
  3. PETHIDINE HYDROCHLORIDE [Interacting]
     Dosage: 1150 MG AS NECESSARY
     Route: 042
     Dates: start: 20060503, end: 20060504

REACTIONS (3)
  - CONVULSION [None]
  - DRUG INTERACTION [None]
  - KNEE ARTHROPLASTY [None]
